FAERS Safety Report 7476737-7 (Version None)
Quarter: 2011Q2

REPORT INFORMATION
  Report Type: 
  Country: None (occurrence: None)
  Receive Date: 20110512
  Receipt Date: 20110509
  Transmission Date: 20111010
  Serious: Yes (Hospitalization)
  Sender: FDA-Public Use
  Company Number: US-BRISTOL-MYERS SQUIBB COMPANY-15731466

PATIENT
  Age: 57 Year
  Sex: Male

DRUGS (7)
  1. OMEPRAZOLE [Concomitant]
     Route: 048
     Dates: start: 20110118
  2. PLACEBO [Suspect]
     Indication: NON-SMALL CELL LUNG CANCER
     Route: 042
     Dates: start: 20110222, end: 20110314
  3. PACLITAXEL [Suspect]
     Indication: NON-SMALL CELL LUNG CANCER
     Route: 042
     Dates: start: 20110222, end: 20110314
  4. DURAGESIC-100 [Concomitant]
     Dosage: 12MCG FROM 12APR11
     Dates: start: 20110324
  5. CARBOPLATIN [Suspect]
     Indication: NON-SMALL CELL LUNG CANCER
     Route: 042
     Dates: start: 20110222, end: 20110314
  6. BLINDED: CT-322 [Suspect]
     Indication: NON-SMALL CELL LUNG CANCER
     Route: 042
     Dates: start: 20110222, end: 20110314
  7. AVASTIN [Suspect]
     Indication: NON-SMALL CELL LUNG CANCER
     Route: 042
     Dates: start: 20110222, end: 20110314

REACTIONS (3)
  - DYSPNOEA [None]
  - ANAEMIA [None]
  - HAEMOGLOBIN DECREASED [None]
